FAERS Safety Report 8863014 (Version 1)
Quarter: 2012Q4

REPORT INFORMATION
  Report Type: 
  Country: US (occurrence: US)
  Receive Date: 20121026
  Receipt Date: 20121026
  Transmission Date: 20130627
  Serious: No
  Sender: FDA-Public Use
  Company Number: US-ALLERGAN-1113710US

PATIENT
  Sex: Female

DRUGS (1)
  1. ALPHAGAN P [Suspect]
     Indication: INTRAOCULAR PRESSURE INCREASED
     Dosage: 2 Gtt, bid
     Route: 047
     Dates: start: 201109, end: 20111013

REACTIONS (3)
  - Lip swelling [Recovering/Resolving]
  - Headache [Recovered/Resolved]
  - Dry mouth [Recovering/Resolving]
